FAERS Safety Report 10382824 (Version 2)
Quarter: 2018Q3

REPORT INFORMATION
  Report Type: Report from Study
  Country: US (occurrence: US)
  Receive Date: 20140813
  Receipt Date: 20180903
  Transmission Date: 20181010
  Serious: Yes (Other)
  Sender: FDA-Public Use
  Company Number: US-SA-2013SA116969

PATIENT
  Age: 13 Year
  Sex: Male
  Weight: 100 kg

DRUGS (2)
  1. AGALSIDASE BETA [Suspect]
     Active Substance: AGALSIDASE BETA
     Indication: FABRY^S DISEASE
     Dosage: 70 MG/KG,QOW
     Route: 041
     Dates: start: 20130814
  2. ERGOCALCIFEROL. [Concomitant]
     Active Substance: ERGOCALCIFEROL
     Dosage: UNK

REACTIONS (9)
  - Protein urine present [Not Recovered/Not Resolved]
  - Gastric disorder [Recovering/Resolving]
  - Glucose tolerance impaired [Not Recovered/Not Resolved]
  - Lip swelling [Recovered/Resolved]
  - Underdose [Unknown]
  - Weight decreased [Not Recovered/Not Resolved]
  - Swollen tongue [Recovered/Resolved]
  - Inappropriate schedule of drug administration [Unknown]
  - Central venous catheterisation [Recovered/Resolved]

NARRATIVE: CASE EVENT DATE: 20131106
